FAERS Safety Report 25445385 (Version 1)
Quarter: 2025Q2

REPORT INFORMATION
  Report Type: Spontaneous
  Country: GR (occurrence: GR)
  Receive Date: 20250617
  Receipt Date: 20250617
  Transmission Date: 20250716
  Serious: Yes (Other)
  Sender: ROCHE
  Company Number: None

PATIENT
  Age: 37 Year
  Sex: Female

DRUGS (2)
  1. BEVACIZUMAB [Suspect]
     Active Substance: BEVACIZUMAB
     Indication: Lung adenocarcinoma
     Route: 065
  2. Carboplatin;Pemetrexed [Concomitant]
     Route: 065

REACTIONS (3)
  - Disease progression [Unknown]
  - Arterial stenosis [Unknown]
  - Drug ineffective [Unknown]
